FAERS Safety Report 5426295-3 (Version None)
Quarter: 2007Q3

REPORT INFORMATION
  Report Type: 
  Country: None (occurrence: None)
  Receive Date: 20070827
  Receipt Date: 20070815
  Transmission Date: 20080115
  Serious: Yes (Hospitalization)
  Sender: FDA-Public Use
  Company Number: JP-SANOFI-SYNTHELABO-A01200707175

PATIENT
  Sex: Male
  Weight: 53.5 kg

DRUGS (12)
  1. SELECTOL [Concomitant]
     Indication: PROPHYLAXIS
     Route: 048
  2. NORVASC [Concomitant]
     Indication: HYPERTENSION
     Route: 048
  3. MICARDIS [Concomitant]
     Indication: HYPERTENSION
     Route: 048
  4. ASPIRIN [Concomitant]
     Indication: STENT PLACEMENT
     Route: 048
  5. ASPIRIN [Concomitant]
     Indication: ANGINA PECTORIS
     Route: 048
  6. LANSOPRAZOLE [Concomitant]
     Indication: DRUG USE FOR UNKNOWN INDICATION
     Dosage: UNK
     Route: 065
  7. GASLON N [Concomitant]
     Indication: DRUG USE FOR UNKNOWN INDICATION
     Dosage: UNK
     Route: 065
  8. ITOROL [Concomitant]
     Indication: DRUG USE FOR UNKNOWN INDICATION
     Dosage: UNK
     Route: 065
  9. TICLOPIDINE HCL [Concomitant]
     Indication: DRUG USE FOR UNKNOWN INDICATION
     Dosage: UNK
     Route: 065
  10. PLAVIX [Suspect]
     Indication: ANTIPLATELET THERAPY
     Dosage: 75 MG
     Route: 048
     Dates: start: 20070524, end: 20070528
  11. PLAVIX [Suspect]
     Indication: STENT PLACEMENT
     Dosage: 75 MG
     Route: 048
     Dates: start: 20070524, end: 20070528
  12. PLAVIX [Suspect]
     Indication: ANGINA PECTORIS
     Dosage: 75 MG
     Route: 048
     Dates: start: 20070524, end: 20070528

REACTIONS (4)
  - DERMATITIS EXFOLIATIVE [None]
  - PRURITUS [None]
  - PYREXIA [None]
  - RASH SCARLATINIFORM [None]
